FAERS Safety Report 7810988 (Version 2)
Quarter: 2014Q1

REPORT INFORMATION
  Report Type: Spontaneous
  Country: AU (occurrence: AU)
  Receive Date: 20110214
  Receipt Date: 20140122
  Transmission Date: 20141002
  Serious: No
  Sender: FDA-Public Use
  Company Number: AU-JNJFOC-20110203493

PATIENT
  Age: 43 Year
  Sex: Female

DRUGS (2)
  1. DUROGESIC [Suspect]
     Indication: ARTHRALGIA
     Route: 062
  2. DUROGESIC [Suspect]
     Indication: ARTHRALGIA
     Route: 062

REACTIONS (3)
  - Drug ineffective [Unknown]
  - Product quality issue [Unknown]
  - Wrong technique in drug usage process [Unknown]
